FAERS Safety Report 14536889 (Version 1)
Quarter: 2018Q1

REPORT INFORMATION
  Report Type: Spontaneous
  Country: FR (occurrence: FR)
  Receive Date: 20180215
  Receipt Date: 20180215
  Transmission Date: 20180509
  Serious: Yes (Other)
  Sender: FDA-Public Use
  Company Number: FR-BEH-2018087477

PATIENT
  Age: 61 Year
  Sex: Male

DRUGS (2)
  1. RESPREEZA [Suspect]
     Active Substance: .ALPHA.1-PROTEINASE INHIBITOR HUMAN
     Dosage: 1 DF, UNK, 1 INFUSION
     Route: 065
     Dates: start: 20180119
  2. RESPREEZA [Suspect]
     Active Substance: .ALPHA.1-PROTEINASE INHIBITOR HUMAN
     Indication: ALPHA-1 ANTI-TRYPSIN DEFICIENCY
     Dosage: 1 DF, UNK, 1 INFUSION
     Route: 065
     Dates: start: 20171219

REACTIONS (8)
  - Vomiting [Recovered/Resolved]
  - Dizziness [Recovered/Resolved]
  - Feeling cold [Unknown]
  - Paraesthesia [Recovered/Resolved]
  - Feeling cold [Recovered/Resolved]
  - Chest pain [Recovered/Resolved]
  - Paraesthesia [Unknown]
  - Face oedema [Recovered/Resolved]

NARRATIVE: CASE EVENT DATE: 20171219
